FAERS Safety Report 12807734 (Version 1)
Quarter: 2016Q4

REPORT INFORMATION
  Report Type: Spontaneous
  Country: US (occurrence: US)
  Receive Date: 20161004
  Receipt Date: 20161004
  Transmission Date: 20170207
  Serious: No
  Sender: FDA-Public Use
  Company Number: US-AMGEN-USASP2016059824

PATIENT
  Age: 75 Year
  Sex: Male

DRUGS (2)
  1. XGEVA [Suspect]
     Active Substance: DENOSUMAB
     Indication: PROSTATE CANCER
     Dosage: UNK, Q3WK
     Route: 065
  2. LEUPRORELIN [Concomitant]
     Active Substance: LEUPROLIDE ACETATE

REACTIONS (6)
  - Papule [Unknown]
  - Mobility decreased [Unknown]
  - Tooth disorder [Unknown]
  - Anxiety [Unknown]
  - Myalgia [Unknown]
  - Arthralgia [Recovered/Resolved]
